FAERS Safety Report 25016204 (Version 3)
Quarter: 2025Q2

REPORT INFORMATION
  Report Type: Report from Study
  Country: US (occurrence: US)
  Receive Date: 20250227
  Receipt Date: 20250618
  Transmission Date: 20250717
  Serious: Yes (Death, Other)
  Sender: ACADIA PHARMACEUTICALS
  Company Number: US-ACADIA PHARMACEUTICALS INC.-ACA-2025-PIM-001992

PATIENT

DRUGS (14)
  1. NUPLAZID [Suspect]
     Active Substance: PIMAVANSERIN TARTRATE
     Indication: Parkinson^s disease psychosis
     Dosage: 34 MILLIGRAM, QD
     Route: 048
  2. CARBIDOPA AND LEVODOPA [Concomitant]
     Active Substance: CARBIDOPA\LEVODOPA
  3. ASPIRIN [Concomitant]
     Active Substance: ASPIRIN
  4. TERAZOSIN [Concomitant]
     Active Substance: TERAZOSIN HYDROCHLORIDE
  5. METOPROLOL [Concomitant]
     Active Substance: METOPROLOL
  6. LATANOPROST [Concomitant]
     Active Substance: LATANOPROST
  7. CALMOSEPTINE [MENTHOL;ZINC OXIDE] [Concomitant]
  8. HYDROXYUREA [Concomitant]
     Active Substance: HYDROXYUREA
  9. CEPHALEXIN MONOHYDRATE [Concomitant]
     Active Substance: CEPHALEXIN MONOHYDRATE
  10. TRAZODONE [Concomitant]
     Active Substance: TRAZODONE HYDROCHLORIDE
  11. FINASTERIDE [Concomitant]
     Active Substance: FINASTERIDE
  12. ATORVASTATIN [Concomitant]
     Active Substance: ATORVASTATIN
  13. SENNA LEAF [Concomitant]
     Active Substance: SENNA LEAF
  14. VITAMIN D3 [Concomitant]
     Active Substance: CHOLECALCIFEROL

REACTIONS (2)
  - Dementia [Fatal]
  - Parkinson^s disease [Fatal]
